FAERS Safety Report 17948906 (Version 1)
Quarter: 2020Q2

REPORT INFORMATION
  Report Type: Spontaneous
  Country: US (occurrence: US)
  Receive Date: 20200625
  Receipt Date: 20200625
  Transmission Date: 20200714
  Serious: No
  Sender: FDA-Public Use
  Company Number: US-ROCHE-2355099

PATIENT
  Age: 33 Year
  Sex: Male
  Weight: 86.26 kg

DRUGS (1)
  1. KLONOPIN [Suspect]
     Active Substance: CLONAZEPAM
     Indication: NERVOUS SYSTEM DISORDER
     Route: 048
     Dates: start: 2017

REACTIONS (13)
  - Feeling abnormal [Unknown]
  - Chest discomfort [Unknown]
  - Ear discomfort [Unknown]
  - Nausea [Unknown]
  - Hyperaesthesia [Unknown]
  - Nausea [Not Recovered/Not Resolved]
  - Decreased appetite [Not Recovered/Not Resolved]
  - Product quality issue [Unknown]
  - Drug ineffective [Unknown]
  - Fatigue [Unknown]
  - Hot flush [Unknown]
  - Adverse drug reaction [Unknown]
  - Skin burning sensation [Unknown]

NARRATIVE: CASE EVENT DATE: 20190704
